FAERS Safety Report 11347899 (Version 1)
Quarter: 2015Q3

REPORT INFORMATION
  Report Type: Spontaneous
  Country: KR (occurrence: KR)
  Receive Date: 20150806
  Receipt Date: 20150806
  Transmission Date: 20151125
  Serious: Yes (Death, Hospitalization, Other)
  Sender: FDA-Public Use
  Company Number: KR-GLAXOSMITHKLINE-KR2015GSK107491

PATIENT
  Age: 33 Year
  Sex: Male

DRUGS (3)
  1. ARIPIPRAZOLE. [Concomitant]
     Active Substance: ARIPIPRAZOLE
     Indication: MENTAL DISORDER DUE TO A GENERAL MEDICAL CONDITION
  2. VALPROIC ACID. [Concomitant]
     Active Substance: VALPROIC ACID
     Indication: SEIZURE
     Dosage: UNK
  3. LAMOTRIGINE. [Suspect]
     Active Substance: LAMOTRIGINE
     Indication: SEIZURE
     Dosage: UNK

REACTIONS (9)
  - Coagulopathy [Unknown]
  - Hepatic failure [Fatal]
  - Rash [Unknown]
  - Coma [Unknown]
  - Hypersensitivity [Unknown]
  - Erythema multiforme [Recovering/Resolving]
  - Hepatic encephalopathy [Unknown]
  - Depressed level of consciousness [Unknown]
  - Pyrexia [Unknown]
